FAERS Safety Report 9849523 (Version 1)
Quarter: 2013Q4

REPORT INFORMATION
  Report Type: Spontaneous
  Country: US (occurrence: None)
  Receive Date: 20131226
  Receipt Date: 20131226
  Transmission Date: 20140711
  Serious: Yes (Other)
  Sender: FDA-Public Use
  Company Number: PHEH2013US015209

PATIENT
  Age: 59 Year
  Sex: Female

DRUGS (13)
  1. DIOVAN [Suspect]
     Route: 048
  2. WARFARIN (WARFARIN) [Concomitant]
  3. ALLOPURINOL (ALLOPURINOL) [Concomitant]
  4. HYDRALAZINE (HYDRALAZINE) [Concomitant]
  5. HYDROCODONE (HYDROCODONE) [Concomitant]
  6. MORPHINE SULFATE ER (MORPHINE SULFATE) [Concomitant]
  7. CLONIDINE HCL (CLONIDINE HYDROCHLORIDE) INJECTION [Concomitant]
  8. VERAPAMIL (VERAPAMIL) [Concomitant]
  9. LEVOTHYROXINE (LEVOTHYROXINE) [Concomitant]
  10. GLIMEPIRIDE (GLIMEPIRIDE) [Concomitant]
  11. PHILLIPS STOOL SOFTENER (DOCUSATE SODIUM) [Concomitant]
  12. NIACIN (NICOTINIC ACID) [Concomitant]
  13. VITAMIN D (ERGOCALCIFEROL) [Concomitant]

REACTIONS (2)
  - Renal impairment [None]
  - Blood creatinine increased [None]
